FAERS Safety Report 25279702 (Version 1)
Quarter: 2025Q2

REPORT INFORMATION
  Report Type: Spontaneous
  Country: US (occurrence: US)
  Receive Date: 20250507
  Receipt Date: 20250507
  Transmission Date: 20250717
  Serious: Yes (Death)
  Sender: PFIZER
  Company Number: US-PFIZER INC-202400246763

PATIENT
  Age: 35 Year
  Sex: Female
  Weight: 77.11 kg

DRUGS (4)
  1. TUKYSA [Suspect]
     Active Substance: TUCATINIB
     Indication: Breast cancer metastatic
     Dosage: 300 MG, 2X/DAY
     Route: 048
     Dates: start: 202402, end: 20240809
  2. TUKYSA [Suspect]
     Active Substance: TUCATINIB
     Dosage: 150MG TAKE TWO TABLETS BY MOUTH TWICE A DAY/TUKYSA 150MG WITH A DOSING OF 300MG TWICE DAILY
     Route: 048
  3. PHESGO [Concomitant]
     Active Substance: HYALURONIDASE-ZZXF\PERTUZUMAB\TRASTUZUMAB
  4. FLUCONAZOLE [Concomitant]
     Active Substance: FLUCONAZOLE
     Dosage: 500 MG, 2X/DAY
     Dates: start: 20240823, end: 20240908

REACTIONS (3)
  - Death [Fatal]
  - Off label use [Unknown]
  - Product use issue [Unknown]

NARRATIVE: CASE EVENT DATE: 20250430
